FAERS Safety Report 4285158-X (Version None)
Quarter: 2004Q1

REPORT INFORMATION
  Report Type: 
  Country: None (occurrence: None)
  Receive Date: 20040202
  Receipt Date: 20040116
  Transmission Date: 20041129
  Serious: Yes (Hospitalization)
  Sender: FDA-Public Use
  Company Number: 7259

PATIENT
  Age: 78 Year
  Sex: Male

DRUGS (9)
  1. METHOTREXATE [Suspect]
     Indication: RHEUMATOID ARTHRITIS
     Dosage: 15 MG WEEKLY SC
     Route: 058
     Dates: start: 19970401, end: 20040106
  2. ETANERCEPT [Suspect]
     Indication: RHEUMATOID ARTHRITIS
     Dosage: 25 MG 2/WK SC
     Route: 058
     Dates: start: 20021023
  3. HYDROCORTISONE [Suspect]
     Dosage: 0.1 MG DAILY PO
     Route: 048
     Dates: start: 20031125, end: 20031231
  4. CALCIUM CARBONATE [Concomitant]
  5. METOPROLOL [Concomitant]
  6. MULTIVITAMINS, PLAIN [Concomitant]
  7. NAPROXEN [Concomitant]
  8. RABEPRAZOLE SODIUM [Concomitant]
  9. ALENDRONATE SODIUM [Concomitant]

REACTIONS (5)
  - CHRONIC OBSTRUCTIVE AIRWAYS DISEASE EXACERBATED [None]
  - HYPERHIDROSIS [None]
  - INTERSTITIAL LUNG DISEASE [None]
  - PULMONARY HYPERTENSION [None]
  - RIGHT VENTRICULAR FAILURE [None]
